FAERS Safety Report 5149913-6 (Version None)
Quarter: 2006Q4

REPORT INFORMATION
  Report Type: 
  Country: None (occurrence: None)
  Receive Date: 20060918
  Receipt Date: 20060605
  Transmission Date: 20070319
  Serious: Yes (Other)
  Sender: FDA-Public Use
  Company Number: US-JNJFOC-20060403972

PATIENT
  Age: 42 Year
  Sex: Male

DRUGS (1)
  1. TOPAMAX [Suspect]
     Indication: CONVULSION
     Dosage: 100 MG, 4 IN 24 HOUR, ORAL
     Route: 048
     Dates: start: 20030101, end: 20060301

REACTIONS (9)
  - ANGER [None]
  - ANXIETY [None]
  - BLOOD POTASSIUM DECREASED [None]
  - CHEST PAIN [None]
  - DELUSION [None]
  - MOOD SWINGS [None]
  - NEPHROLITHIASIS [None]
  - PAIN [None]
  - PARANOIA [None]
